FAERS Safety Report 23273326 (Version 2)
Quarter: 2023Q4

REPORT INFORMATION
  Report Type: Spontaneous
  Country: JP (occurrence: JP)
  Receive Date: 20231207
  Receipt Date: 20231229
  Transmission Date: 20240110
  Serious: Yes (Other)
  Sender: FDA-Public Use
  Company Number: A202300629-001

PATIENT
  Age: 76 Year
  Sex: Female

DRUGS (3)
  1. BENDAMUSTINE HYDROCHLORIDE [Suspect]
     Active Substance: BENDAMUSTINE HYDROCHLORIDE
     Indication: Follicular lymphoma
     Dosage: 70 MG/M2, GB THERAPY
     Route: 042
  2. GAZYVA [Suspect]
     Active Substance: OBINUTUZUMAB
     Indication: Follicular lymphoma
     Dosage: 1000 MG, GB THERAPY
     Route: 042
  3. GAZYVA [Suspect]
     Active Substance: OBINUTUZUMAB
     Dosage: UNK, MAINTENANCE THERAPY
     Route: 042

REACTIONS (3)
  - Bronchopulmonary aspergillosis [Recovering/Resolving]
  - Nocardiosis [Recovering/Resolving]
  - Pseudomonas infection [Recovering/Resolving]
